FAERS Safety Report 23458648 (Version 1)
Quarter: 2024Q1

REPORT INFORMATION
  Report Type: Spontaneous
  Country: PL (occurrence: PL)
  Receive Date: 20240130
  Receipt Date: 20240130
  Transmission Date: 20240410
  Serious: Yes (Hospitalization, Other)
  Sender: FDA-Public Use
  Company Number: None

PATIENT
  Age: 16 Year
  Sex: Male
  Weight: 52 kg

DRUGS (7)
  1. IFOSFAMIDE [Suspect]
     Active Substance: IFOSFAMIDE
     Indication: Ewing^s sarcoma
     Dosage: 5340 MG
     Route: 042
     Dates: start: 20190207, end: 20190208
  2. MESNA [Suspect]
     Active Substance: MESNA
     Indication: Ewing^s sarcoma
     Dosage: 1780 MG
     Route: 042
     Dates: start: 20190207, end: 20190208
  3. ONDANSETRON [Concomitant]
     Active Substance: ONDANSETRON
     Indication: Ewing^s sarcoma
     Dosage: 24 MG
     Route: 042
     Dates: start: 20190207, end: 20190208
  4. OMEPRAZOLE [Concomitant]
     Active Substance: OMEPRAZOLE
     Indication: Gastritis
     Dosage: 20 MG, THERAPY ONGOING, START DATE: JUN-2018
     Route: 048
  5. VINCRISTINE [Concomitant]
     Active Substance: VINCRISTINE
     Indication: Ewing^s sarcoma
     Dosage: 2 MG
     Route: 042
     Dates: start: 20190207, end: 20190208
  6. SERTRALINE HYDROCHLORIDE [Concomitant]
     Active Substance: SERTRALINE HYDROCHLORIDE
     Indication: Depression
     Dosage: 25 UG, THERAPY ONGOING, START DATE: OCT-2018
     Route: 048
  7. ULGASTRAN [Concomitant]
     Indication: Gastritis
     Dosage: 20 ML, THERAPY ONGOING, START DATE: JUN-2018
     Route: 048

REACTIONS (2)
  - Loss of consciousness [Recovered/Resolved]
  - Seizure [Recovered/Resolved]

NARRATIVE: CASE EVENT DATE: 20190207
